FAERS Safety Report 5083937-2 (Version None)
Quarter: 2006Q3

REPORT INFORMATION
  Report Type: 
  Country: None (occurrence: None)
  Receive Date: 20060727
  Receipt Date: 20060523
  Transmission Date: 20061208
  Serious: Yes (Other)
  Sender: FDA-Public Use
  Company Number: 2006049983

PATIENT
  Age: 65 Year
  Sex: Male
  Weight: 97.5234 kg

DRUGS (13)
  1. LYRICA [Suspect]
     Indication: BURNING SENSATION
     Dosage: 100 MG (50 MG,2 IN 1 D),ORAL
     Route: 048
     Dates: start: 20060301
  2. LYRICA [Suspect]
     Indication: PAIN IN EXTREMITY
     Dosage: 100 MG (50 MG,2 IN 1 D),ORAL
     Route: 048
     Dates: start: 20060301
  3. FENTANYL [Suspect]
     Indication: PAIN
     Dosage: (50 MCG,1 IN 3 D), TRANSDERMAL
     Route: 062
  4. FOLIC ACID [Concomitant]
  5. PLAVIX [Concomitant]
  6. ASPIRIN [Concomitant]
  7. COREG [Concomitant]
  8. FUROSEMIDE [Concomitant]
  9. DIGOXIN [Concomitant]
  10. ENALAPRIL MALEATE [Concomitant]
  11. INSPRA [Concomitant]
  12. TRICOR [Concomitant]
  13. HYDOCODONE (HYDROCODONE) [Concomitant]

REACTIONS (5)
  - DEPERSONALISATION [None]
  - DIZZINESS [None]
  - DRUG EFFECT DECREASED [None]
  - DRUG WITHDRAWAL SYNDROME [None]
  - THINKING ABNORMAL [None]
